FAERS Safety Report 9209163 (Version 2)
Quarter: 2013Q2

REPORT INFORMATION
  Report Type: Spontaneous
  Country: US (occurrence: US)
  Receive Date: 20130404
  Receipt Date: 20130628
  Transmission Date: 20140414
  Serious: Yes (Hospitalization, Other)
  Sender: FDA-Public Use
  Company Number: PHEH2013US006046

PATIENT
  Age: 76 Year
  Sex: Female
  Weight: 68 kg

DRUGS (20)
  1. GLEEVEC [Suspect]
     Indication: CHRONIC MYELOID LEUKAEMIA
     Dosage: 400 MG, QD
     Route: 048
  2. ALBUTEROL [Concomitant]
     Indication: DYSPNOEA
     Dosage: 2 DF, UNK
  3. ALBUTEROL [Concomitant]
     Dosage: UNK UKN, FOUR TO SIX HOURS, PRN
  4. FISH OIL [Concomitant]
     Dosage: 1000 MG, DAILY
     Route: 048
  5. METFORMIN [Concomitant]
     Dosage: 500 MG, BID
     Route: 048
  6. CLOPIDOGREL BISULFATE [Concomitant]
     Dosage: 75 MG, DAILY
     Route: 048
  7. POTASSIUM CHLORIDE [Concomitant]
     Dosage: 25 MEQ, DAILY
     Route: 048
  8. FUROSEMIDE [Concomitant]
     Dosage: 40 MG, UNK
     Route: 048
  9. LASIX [Concomitant]
     Dosage: 40 MG, DAILY
     Route: 048
  10. RANEXA [Concomitant]
     Dosage: 500 MG, BID
     Route: 048
  11. SIMVASTATIN [Concomitant]
     Dosage: 20 MG, QHS
  12. SIMVASTATIN [Concomitant]
     Dosage: 20 MG, DAILY
     Route: 048
  13. SIMVASTATIN [Concomitant]
     Dosage: 1 DF, QHS
     Route: 048
  14. ACETAMINOPHEN [Concomitant]
     Dosage: 650 MG, EVERY SIX HOURS,  PRN
     Route: 048
  15. ATROVENT [Concomitant]
     Indication: DYSPNOEA
     Dosage: UNK UKN, EVERY FOUR HOURS, PRN
  16. TOPROL [Concomitant]
     Dosage: 25 MG, DAILY
     Route: 048
  17. NITRO [Concomitant]
     Dosage: UNK, PRN
  18. OMEGA 3 [Concomitant]
     Dosage: 1 G, BID
     Route: 048
  19. GLIPIZIDE [Concomitant]
     Dosage: 5 MG, BID
     Route: 048
  20. KC [Concomitant]
     Dosage: 10 MEQ, DAILY
     Route: 048

REACTIONS (25)
  - Chronic obstructive pulmonary disease [Recovering/Resolving]
  - Cough [Not Recovered/Not Resolved]
  - Pyrexia [Not Recovered/Not Resolved]
  - Chest pain [Not Recovered/Not Resolved]
  - Malaise [Unknown]
  - Dyspnoea [Recovering/Resolving]
  - Coronary artery disease [Unknown]
  - Deep vein thrombosis [Unknown]
  - Bronchitis [Unknown]
  - Tachycardia [Unknown]
  - Heart rate increased [Unknown]
  - Asthenia [Unknown]
  - Movement disorder [Unknown]
  - Blood albumin decreased [Unknown]
  - Blood glucose increased [Unknown]
  - Neutrophil count increased [Unknown]
  - Respiratory rate increased [Unknown]
  - Blood urea increased [Unknown]
  - Body temperature increased [Unknown]
  - Anxiety [Unknown]
  - Blood pressure increased [Unknown]
  - Anaemia [Unknown]
  - Haemoglobin decreased [Unknown]
  - Blood pressure decreased [Unknown]
  - Fatigue [Unknown]
